FAERS Safety Report 9903194 (Version 1)
Quarter: 2014Q1

REPORT INFORMATION
  Report Type: Spontaneous
  Country: US (occurrence: US)
  Receive Date: 20140217
  Receipt Date: 20140217
  Transmission Date: 20141002
  Serious: No
  Sender: FDA-Public Use
  Company Number: US-ASTRAZENECA-2013SE74733

PATIENT
  Age: 62 Year
  Sex: Female
  Weight: 68.9 kg

DRUGS (11)
  1. ATENOLOL [Suspect]
     Route: 048
  2. ELAVIL [Suspect]
     Route: 065
  3. ZOCOR [Concomitant]
  4. LASIX [Concomitant]
  5. ZOLOFT [Concomitant]
  6. SYNTHROID [Concomitant]
  7. CELEBREX [Concomitant]
  8. LIDODERM PATCH [Concomitant]
  9. STOOL SOFTENER [Concomitant]
  10. PERCOCET [Concomitant]
  11. MULTIVITAMIN [Concomitant]

REACTIONS (1)
  - Swollen tongue [Unknown]
